FAERS Safety Report 5259113-7 (Version None)
Quarter: 2007Q1

REPORT INFORMATION
  Report Type: 
  Country: None (occurrence: None)
  Receive Date: 20070305
  Receipt Date: 20070222
  Transmission Date: 20070707
  Serious: Yes (Other)
  Sender: FDA-Public Use
  Company Number: 13685623

PATIENT
  Sex: Female
  Weight: 99.77 kg

DRUGS (9)
  1. EMSAM [Suspect]
     Indication: DEPRESSION
     Dosage: 6 MILLIGRAM, 24 HOUR
     Dates: end: 20070222
  2. LAMICTAL [Concomitant]
  3. SEROQUEL [Concomitant]
  4. LIPITOR [Concomitant]
  5. ATENOLOL [Concomitant]
  6. COZAAR [Concomitant]
  7. HUMALOG [Concomitant]
  8. HUMULIN N [Concomitant]
  9. VALIUM [Concomitant]

REACTIONS (5)
  - CHEST PAIN [None]
  - CONDITION AGGRAVATED [None]
  - FATIGUE [None]
  - HEART RATE INCREASED [None]
  - HYPERTENSION [None]
